FAERS Safety Report 20050558 (Version 1)
Quarter: 2021Q4

REPORT INFORMATION
  Report Type: Spontaneous
  Country: FR (occurrence: FR)
  Receive Date: 20211109
  Receipt Date: 20211109
  Transmission Date: 20220303
  Serious: Yes (Hospitalization, Congenital Anomaly, Other)
  Sender: FDA-Public Use
  Company Number: FR-ABBVIE-21K-056-4149139-00

PATIENT
  Sex: Male

DRUGS (1)
  1. VALPROATE SODIUM [Suspect]
     Active Substance: VALPROATE SODIUM
     Indication: Product used for unknown indication
     Route: 064

REACTIONS (28)
  - Plagiocephaly [Unknown]
  - Congenital jaw malformation [Unknown]
  - Hydrocele [Unknown]
  - Hypotonia [Unknown]
  - Fine motor skill dysfunction [Unknown]
  - Coordination abnormal [Unknown]
  - Behaviour disorder [Unknown]
  - Dysarthria [Unknown]
  - Speech disorder developmental [Unknown]
  - Language disorder [Unknown]
  - Frustration tolerance decreased [Unknown]
  - Memory impairment [Unknown]
  - Attention deficit hyperactivity disorder [Unknown]
  - Dysmorphism [Unknown]
  - Limb discomfort [Unknown]
  - Personal relationship issue [Unknown]
  - Gait disturbance [Unknown]
  - Gastrooesophageal reflux disease [Unknown]
  - Nasopharyngitis [Unknown]
  - Bronchitis [Unknown]
  - Ear infection [Unknown]
  - Astigmatism [Unknown]
  - Strabismus [Unknown]
  - Fatigue [Unknown]
  - Anxiety [Unknown]
  - Diarrhoea [Unknown]
  - Pyrexia [Unknown]
  - Gastroenteritis [Unknown]
